FAERS Safety Report 4299830-9 (Version None)
Quarter: 2004Q1

REPORT INFORMATION
  Report Type: 
  Country: None (occurrence: None)
  Receive Date: 20040219
  Receipt Date: 20040121
  Transmission Date: 20041129
  Serious: Yes (Life-Threatening, Hospitalization)
  Sender: FDA-Public Use
  Company Number: WAES 0401CAN00089

PATIENT
  Age: 50 Year
  Sex: Male
  Weight: 83 kg

DRUGS (10)
  1. ACETAMINOPHEN AND CODEINE PHOSPHATE [Concomitant]
     Indication: PAIN
     Route: 048
     Dates: start: 20000430
  2. CYCLOBENZAPRINE HYDROCHLORIDE [Concomitant]
     Indication: MUSCLE RELAXANT THERAPY
     Dates: start: 20000508
  3. CYCLOBENZAPRINE HYDROCHLORIDE [Concomitant]
     Dates: start: 20000717
  4. CYCLOBENZAPRINE HYDROCHLORIDE [Concomitant]
     Dates: start: 20000621
  5. LORAZEPAM [Concomitant]
     Dates: start: 20000508
  6. VIOXX [Suspect]
     Indication: BACK PAIN
     Route: 048
     Dates: start: 20001008, end: 20001010
  7. VIOXX [Suspect]
     Route: 048
     Dates: start: 20000427, end: 20000919
  8. VIOXX [Suspect]
     Indication: ANTIINFLAMMATORY THERAPY
     Route: 048
     Dates: start: 20001008, end: 20001010
  9. VIOXX [Suspect]
     Route: 048
     Dates: start: 20000427, end: 20000919
  10. ZOPICLONE [Concomitant]
     Dates: start: 20000811

REACTIONS (6)
  - ANOREXIA [None]
  - DECREASED APPETITE [None]
  - LOCALISED INFECTION [None]
  - PERIPHERAL COLDNESS [None]
  - THIRST [None]
  - URINE OUTPUT DECREASED [None]
